FAERS Safety Report 10025345 (Version 2)
Quarter: 2014Q2

REPORT INFORMATION
  Report Type: Spontaneous
  Country: US (occurrence: US)
  Receive Date: 20140320
  Receipt Date: 20140422
  Transmission Date: 20141212
  Serious: Yes (Hospitalization, Other)
  Sender: FDA-Public Use
  Company Number: US-BAYER-2014-040869

PATIENT
  Age: 46 Year
  Sex: Female
  Weight: 90.39 kg

DRUGS (4)
  1. YAZ [Suspect]
  2. YASMIN [Suspect]
  3. OCELLA [Suspect]
  4. GIANVI [Suspect]

REACTIONS (6)
  - Pulmonary embolism [None]
  - Cholelithiasis [None]
  - Injury [None]
  - Emotional distress [None]
  - Pain [None]
  - Pain [None]
